FAERS Safety Report 9752190 (Version 1)
Quarter: 2013Q4

REPORT INFORMATION
  Report Type: Spontaneous
  Country: US (occurrence: US)
  Receive Date: 20131213
  Receipt Date: 20131213
  Transmission Date: 20140711
  Serious: No
  Sender: FDA-Public Use
  Company Number: US-009507513-1312USA002345

PATIENT
  Age: 83 Year
  Sex: Female

DRUGS (1)
  1. COSOPT PF [Suspect]
     Indication: GLAUCOMA
     Dosage: 1 DROP IN LEFT EYE DAILY, INTRAOCULAR
     Route: 031
     Dates: start: 20130910

REACTIONS (2)
  - Eye irritation [Not Recovered/Not Resolved]
  - Eye pain [Not Recovered/Not Resolved]
